FAERS Safety Report 8430088 (Version 2)
Quarter: 2016Q1

REPORT INFORMATION
  Report Type: Spontaneous
  Country: CA (occurrence: CA)
  Receive Date: 20120228
  Receipt Date: 20160112
  Transmission Date: 20160526
  Serious: Yes (Hospitalization, Other)
  Sender: FDA-Public Use
  Company Number: CA-JNJFOC-20120208514

PATIENT
  Age: 53 Year
  Sex: Male
  Weight: 60 kg

DRUGS (16)
  1. NOVOPREDNISONE [Concomitant]
     Indication: PREMEDICATION
     Dosage: FILL DATE STATUS: 16-AUG-2011
     Route: 065
     Dates: start: 20100930
  2. GRAVOL [Concomitant]
     Active Substance: DIMENHYDRINATE
     Dosage: FILL DATE STATUS: 08-AUG-2011
     Route: 065
     Dates: start: 20110808
  3. PMS-CLONAZEPAM [Concomitant]
     Active Substance: CLONAZEPAM
     Dosage: FILL DATE STATUS: 07-JUL-2011 2 TO 3 TABLETS AS NEEDED
     Route: 065
     Dates: start: 20110627
  4. SATIVEX [Concomitant]
     Active Substance: NABIXIMOLS
     Dosage: FILL DATE STATUS: 01-MAY-2011 (PART FILL) 1 TO 5 SPRAYS PER DAY
     Route: 065
     Dates: start: 20100416
  5. REMICADE [Suspect]
     Active Substance: INFLIXIMAB
     Indication: CROHN^S DISEASE
     Route: 042
     Dates: start: 20101004
  6. CESAMET [Concomitant]
     Active Substance: NABILONE
     Dosage: FILL DATE STATUS: 18-AUG-2011 (PART FILL)
     Route: 065
     Dates: start: 20110502
  7. AZATHIOPRINE. [Concomitant]
     Active Substance: AZATHIOPRINE
     Dosage: 3 TABS AT BED TIME FILL DATE STATUS: 08-AUG-2011
     Route: 065
     Dates: start: 20110829
  8. TRYPHTOPHAN [Concomitant]
     Active Substance: TRYPTOPHAN
     Dosage: FILL DATE STATUS: 06-JUL-2011 2 TABLETS
     Route: 065
     Dates: start: 20110502
  9. TESTOSTERONE. [Concomitant]
     Active Substance: TESTOSTERONE
     Dosage: FILL DATE STATUS: 02-APR-2011 (UNFILLES) 100 MG/ML  (1ML)
     Route: 065
     Dates: start: 20110402
  10. PMS-DIPHENHYDRAMINE [Concomitant]
     Indication: PREMEDICATION
     Dosage: FILL DATE STATUS: 16-AUG-2011
     Route: 065
     Dates: start: 20100930
  11. TARGIN [Concomitant]
     Active Substance: NALOXONE HYDROCHLORIDE\OXYCODONE HYDROCHLORIDE
     Dosage: FILL DATE STATUS: 19-JUN-2011 (PART FILL) 10MG / 5MG
     Route: 065
     Dates: start: 20110502
  12. CYMBALTA [Concomitant]
     Active Substance: DULOXETINE HYDROCHLORIDE
     Route: 065
     Dates: start: 20110819
  13. APO-OMEPRAZOLE [Concomitant]
     Active Substance: OMEPRAZOLE
     Dosage: FILL DATE STATUS: 08-AUG-2011
     Route: 065
     Dates: start: 20110627
  14. RATIO-CODEINE [Concomitant]
     Dosage: FILL DATE STATUS: 30-JUN-2011 (PART FILL)  UPTO 9 TABLETS PER DAY
     Route: 065
     Dates: start: 20100703
  15. PANTOPRAZOLE [Concomitant]
     Active Substance: PANTOPRAZOLE SODIUM
     Dosage: FILL DATE STATUS: 10-MAY-2011
     Route: 065
     Dates: start: 20110502
  16. SUPEUDOL [Concomitant]
     Active Substance: OXYCODONE HYDROCHLORIDE
     Dosage: FILL DATE STATUS: 20-JUL-2011 PART FILL
     Route: 065
     Dates: start: 20110628

REACTIONS (6)
  - Psoriasis [Not Recovered/Not Resolved]
  - Vomiting [Unknown]
  - Constipation [Unknown]
  - Nausea [Unknown]
  - Abdominal pain [Unknown]
  - Skin papilloma [Not Recovered/Not Resolved]

NARRATIVE: CASE EVENT DATE: 201112
